FAERS Safety Report 13819327 (Version 2)
Quarter: 2017Q3

REPORT INFORMATION
  Report Type: Spontaneous
  Country: DK (occurrence: DK)
  Receive Date: 20170801
  Receipt Date: 20170913
  Transmission Date: 20171127
  Serious: Yes (Other)
  Sender: FDA-Public Use
  Company Number: DK-AUROBINDO-AUR-APL-2017-37948

PATIENT
  Age: 54 Year
  Sex: Female

DRUGS (1)
  1. SUMATRIPTAN AUROBINDO TABLET [Suspect]
     Active Substance: SUMATRIPTAN
     Indication: MIGRAINE
     Dosage: 50 MG, ONCE A DAY
     Route: 065
     Dates: start: 20160506, end: 20160508

REACTIONS (7)
  - Blindness [Unknown]
  - Asthenopia [Unknown]
  - Visual impairment [Unknown]
  - Headache [Unknown]
  - Migraine [Unknown]
  - Chorioretinopathy [Unknown]
  - Musculoskeletal stiffness [Unknown]

NARRATIVE: CASE EVENT DATE: 20160507
